FAERS Safety Report 8798633 (Version 2)
Quarter: 2012Q4

REPORT INFORMATION
  Report Type: Report from Study
  Country: JP (occurrence: JP)
  Receive Date: 20120920
  Receipt Date: 20121221
  Transmission Date: 20130627
  Serious: Yes (Other)
  Sender: FDA-Public Use
  Company Number: JP-VERTEX PHARMACEUTICAL INC.-AE-2012-011245

PATIENT
  Age: 63 Year
  Sex: Female

DRUGS (15)
  1. VX-950 (TELAPREVIR) [Suspect]
     Indication: CHRONIC HEPATITIS C
     Dosage: 1500 mg, qd
     Route: 048
     Dates: start: 20120605, end: 20120716
  2. VX-950 (TELAPREVIR) [Suspect]
     Dosage: 1000 mg, qd
     Route: 048
     Dates: start: 20120717, end: 20120827
  3. RIBAVIRIN [Suspect]
     Indication: CHRONIC HEPATITIS C
     Dosage: 400 mg, qd
     Route: 048
     Dates: start: 20120605, end: 20120701
  4. RIBAVIRIN [Suspect]
     Dosage: 200 mg, qd
     Route: 048
     Dates: start: 20120702, end: 20121119
  5. PEGINTERFERON ALFA-2B [Concomitant]
     Dosage: 1.2 ?g/kg, qw
     Route: 058
     Dates: start: 20120605
  6. PEGINTERFERON ALFA-2B [Concomitant]
     Dosage: 1.5 ?g/kg, qw
     Route: 058
     Dates: end: 20120924
  7. PEGINTERFERON ALFA-2B [Concomitant]
     Dosage: 1.2 ?g/kg,qw
     Route: 058
     Dates: start: 20121001, end: 20121009
  8. PEGINTERFERON ALFA-2B [Concomitant]
     Dosage: 1.5 ?g/kg, qw
     Route: 058
     Dates: start: 20121015, end: 20121119
  9. LIVALO [Concomitant]
     Dosage: 1 mg, qd
     Route: 048
  10. EPADEL                             /01682401/ [Concomitant]
     Dosage: 1800 mg, qd
     Route: 048
  11. FEROTYM [Concomitant]
     Dosage: 100 mg, qd
     Route: 048
  12. ATELEC [Concomitant]
     Dosage: 10 mg, qd
     Route: 048
  13. BLOPRESS [Concomitant]
     Dosage: 4 mg, qd
     Route: 048
  14. MAGLAX [Concomitant]
     Dosage: 1000 mg, qd
     Route: 048
  15. CLARITIN REDITABS [Concomitant]
     Dosage: 10 mg, qd
     Route: 048

REACTIONS (4)
  - Rash [Unknown]
  - Anaemia [Not Recovered/Not Resolved]
  - Anaemia [Not Recovered/Not Resolved]
  - Anaemia [Not Recovered/Not Resolved]
